FAERS Safety Report 19205620 (Version 1)
Quarter: 2021Q2

REPORT INFORMATION
  Report Type: Spontaneous
  Country: US (occurrence: US)
  Receive Date: 20210503
  Receipt Date: 20210503
  Transmission Date: 20210717
  Serious: No
  Sender: FDA-Public Use
  Company Number: US-FARMAPROD-202101-0090

PATIENT
  Sex: Female
  Weight: 77.18 kg

DRUGS (20)
  1. OXERVATE [Suspect]
     Active Substance: CENEGERMIN-BKBJ
     Indication: NEUROTROPHIC KERATOPATHY
  2. DUREZOL [Concomitant]
     Active Substance: DIFLUPREDNATE
  3. COSOPT [Concomitant]
     Active Substance: DORZOLAMIDE HYDROCHLORIDE\TIMOLOL MALEATE
     Dosage: 22.3?6.8/1 DROPS
  4. ASPIRIN. [Concomitant]
     Active Substance: ASPIRIN
  5. BACLOFEN. [Concomitant]
     Active Substance: BACLOFEN
  6. RHOPRESSA [Concomitant]
     Active Substance: NETARSUDIL MESYLATE
  7. OXERVATE [Suspect]
     Active Substance: CENEGERMIN-BKBJ
     Indication: NEUROTROPHIC KERATOPATHY
     Route: 047
     Dates: start: 20201207
  8. ADVIL [Concomitant]
     Active Substance: IBUPROFEN
  9. AZITHROMYCIN ANHYDROUS. [Concomitant]
     Active Substance: AZITHROMYCIN ANHYDROUS
  10. LATANOPROST. [Concomitant]
     Active Substance: LATANOPROST
  11. MELATONIN [Concomitant]
     Active Substance: MELATONIN
  12. CALCIUM/VITAMINE D3 [Concomitant]
     Dosage: 600MG?500 MG EXTENDED RELEASE TABLET
  13. TYLENOL [Concomitant]
     Active Substance: ACETAMINOPHEN
  14. VITAMIN B12 [Concomitant]
     Active Substance: CYANOCOBALAMIN
  15. POTASSIUM [Concomitant]
     Active Substance: POTASSIUM
     Dosage: 595 (99) MG
  16. TRAZODONE HYDROCHLORIDE. [Concomitant]
     Active Substance: TRAZODONE HYDROCHLORIDE
  17. OMEPRAZOLE AND SODIUM BICARBONATE [Concomitant]
     Active Substance: OMEPRAZOLE\SODIUM BICARBONATE
  18. SYNTHROID [Concomitant]
     Active Substance: LEVOTHYROXINE SODIUM
  19. CYMBALTA [Concomitant]
     Active Substance: DULOXETINE HYDROCHLORIDE
  20. PRAVASTATIN SODIUM. [Concomitant]
     Active Substance: PRAVASTATIN SODIUM

REACTIONS (2)
  - Therapy interrupted [Unknown]
  - Condition aggravated [Unknown]
